FAERS Safety Report 20635153 (Version 9)
Quarter: 2022Q4

REPORT INFORMATION
  Report Type: Report from Study
  Country: KR (occurrence: KR)
  Receive Date: 20220325
  Receipt Date: 20221219
  Transmission Date: 20230113
  Serious: Yes (Hospitalization)
  Sender: FDA-Public Use
  Company Number: KR-EXELIXIS-XL18422050315

PATIENT

DRUGS (26)
  1. CABOZANTINIB [Suspect]
     Active Substance: CABOZANTINIB
     Indication: Renal cell carcinoma
     Dosage: 60 MG, QD
     Route: 048
     Dates: start: 20210726
  2. CABOZANTINIB [Suspect]
     Active Substance: CABOZANTINIB
     Dosage: 40 MG
     Route: 048
     Dates: end: 20220315
  3. ATEZOLIZUMAB [Suspect]
     Active Substance: ATEZOLIZUMAB
     Indication: Renal cell carcinoma
     Dosage: 1200 MG, Q3WEEKS
     Route: 041
     Dates: start: 20210726
  4. DIABEX [Concomitant]
     Active Substance: METFORMIN HYDROCHLORIDE
     Indication: Diabetes mellitus
     Dosage: 1000 MG, QD
     Route: 048
  5. GLUCODOWN [Concomitant]
     Indication: Diabetes mellitus
     Dosage: 750 MG, QD
     Route: 048
     Dates: start: 20220315
  6. GLICLAZIDE [Concomitant]
     Active Substance: GLICLAZIDE
     Indication: Diabetes mellitus
     Dosage: 60 MG, QD
     Route: 048
  7. Mypol [Concomitant]
     Indication: Back pain
     Dosage: 1 {DF}, PRN (1 CAPSULE (PRN))
     Route: 048
     Dates: start: 20210215
  8. Mypol [Concomitant]
     Indication: Pain in extremity
  9. Mago [Concomitant]
     Indication: Constipation
     Dosage: 500 MG, PRN
     Route: 048
     Dates: start: 20210215
  10. TWOLION [Concomitant]
     Dosage: 5 MG, BID
     Route: 048
     Dates: start: 20210308
  11. CILAZAPRIL ANHYDROUS [Concomitant]
     Active Substance: CILAZAPRIL ANHYDROUS
     Indication: Hypertension
     Dosage: 2.5 MG, QD
     Route: 048
     Dates: start: 20210308
  12. EZETIMIBE\ROSUVASTATIN [Concomitant]
     Active Substance: EZETIMIBE\ROSUVASTATIN
     Indication: Blood cholesterol increased
     Dosage: 10 MG, QD
     Route: 048
     Dates: start: 20210607
  13. Hexamedin [Concomitant]
     Indication: Pharyngitis
     Dosage: 100 ML, PRN
     Route: 065
     Dates: start: 20210819
  14. Hexamedin [Concomitant]
     Indication: Oropharyngeal pain
     Dosage: 100 ML, 1 IN 1 AS REQUIRED
     Route: 065
     Dates: start: 20220317
  15. MEGACE [Concomitant]
     Active Substance: MEGESTROL ACETATE
     Indication: Decreased appetite
     Dosage: 10 ML, PRN
     Route: 048
     Dates: start: 20211108
  16. Almax [Concomitant]
     Indication: Dyspepsia
     Dosage: 15 ML, PRN
     Route: 048
     Dates: start: 20211108
  17. LEVOTHYROXINE SODIUM [Concomitant]
     Active Substance: LEVOTHYROXINE SODIUM
     Indication: Hypothyroidism
     Dosage: 100 UG, QD
     Route: 048
     Dates: start: 20211220, end: 20220318
  18. LEVOTHYROXINE SODIUM [Concomitant]
     Active Substance: LEVOTHYROXINE SODIUM
     Dosage: 113 UG, QD
     Route: 048
     Dates: start: 20220319
  19. UREA [Concomitant]
     Active Substance: UREA
     Indication: Palmar-plantar erythrodysaesthesia syndrome
     Dosage: 50 G, PRN
     Route: 061
     Dates: start: 20211220
  20. LIDOMAX [Concomitant]
     Indication: Palmar-plantar erythrodysaesthesia syndrome
     Dosage: 20 G, PRN
     Route: 061
     Dates: start: 20211220
  21. METOCLOPRAMIDE HYDROCHLORIDE [Concomitant]
     Active Substance: METOCLOPRAMIDE HYDROCHLORIDE
     Indication: Nausea
     Dosage: 5 MG, PRN
     Route: 048
     Dates: start: 20220112
  22. Citopcin [Concomitant]
     Indication: Cystitis
     Dosage: 500 MG, BID
     Route: 048
     Dates: start: 20220321, end: 20220327
  23. TENELIGLIPTIN [Concomitant]
     Active Substance: TENELIGLIPTIN
     Indication: Diabetes mellitus
     Dosage: 20 MG, QD
     Route: 048
     Dates: start: 20220316
  24. TANTUM [Concomitant]
     Active Substance: BENZYDAMINE HYDROCHLORIDE
     Indication: Oropharyngeal pain
     Dosage: 100 ML, 1 IN 1 AS REQUIRED
     Route: 065
     Dates: start: 20220318
  25. COUGH SYRUP [Concomitant]
     Active Substance: DEXTROMETHORPHAN HYDROBROMIDE\GUAIFENESIN
     Indication: Oropharyngeal pain
     Dosage: 20 ML, 1 IN 1 AS REQUIRED
     Route: 048
     Dates: start: 20220319
  26. SUNITINIB [Concomitant]
     Active Substance: SUNITINIB
     Indication: Neoplasm malignant
     Dosage: 25 MG
     Dates: start: 20220427

REACTIONS (1)
  - Cerebrovascular accident [Not Recovered/Not Resolved]

NARRATIVE: CASE EVENT DATE: 20220313
